FAERS Safety Report 25227155 (Version 1)
Quarter: 2025Q2

REPORT INFORMATION
  Report Type: Spontaneous
  Country: FR (occurrence: FR)
  Receive Date: 20250422
  Receipt Date: 20250422
  Transmission Date: 20250717
  Serious: Yes (Life-Threatening)
  Sender: ORGANON
  Company Number: None

PATIENT
  Age: 49 Year
  Sex: Male

DRUGS (5)
  1. MIRTAZAPINE [Suspect]
     Active Substance: MIRTAZAPINE
  2. COCAINE [Suspect]
     Active Substance: COCAINE
  3. OXAZEPAM [Suspect]
     Active Substance: OXAZEPAM
  4. IMOVANE [Suspect]
     Active Substance: ZOPICLONE
  5. CANNABIS SATIVA SUBSP. INDICA TOP [Suspect]
     Active Substance: CANNABIS SATIVA SUBSP. INDICA TOP

REACTIONS (4)
  - Poisoning deliberate [Unknown]
  - Coma [Unknown]
  - Respiratory failure [Unknown]
  - Substance use disorder [Unknown]
